FAERS Safety Report 15247209 (Version 1)
Quarter: 2018Q3

REPORT INFORMATION
  Report Type: Spontaneous
  Country: US (occurrence: US)
  Receive Date: 20180807
  Receipt Date: 20180807
  Transmission Date: 20181010
  Serious: No
  Sender: FDA-Public Use
  Company Number: US-TRIS PHARMA, INC.-2018TRISPO00561

PATIENT

DRUGS (4)
  1. DYANAVEL XR [Suspect]
     Active Substance: AMPHETAMINE
     Dosage: 1.5 ML, UNK
     Route: 065
     Dates: start: 20180630
  2. DYANAVEL XR [Suspect]
     Active Substance: AMPHETAMINE
     Indication: ATTENTION DEFICIT/HYPERACTIVITY DISORDER
     Dosage: 1 ML, UNK
     Route: 065
     Dates: start: 20180629
  3. DYANAVEL XR [Suspect]
     Active Substance: AMPHETAMINE
     Dosage: 2 ML, UNK
     Route: 065
     Dates: start: 20180701
  4. DYANAVEL XR [Suspect]
     Active Substance: AMPHETAMINE
     Dosage: 1.5 ML, UNK
     Route: 065

REACTIONS (8)
  - Blood creatinine increased [Unknown]
  - Blood creatine phosphokinase increased [Unknown]
  - Alanine aminotransferase increased [Unknown]
  - Pain [Recovered/Resolved]
  - Aspartate aminotransferase increased [Unknown]
  - Pain in extremity [Recovered/Resolved]
  - Blood creatine phosphokinase MB increased [Unknown]
  - Fatigue [Recovered/Resolved]

NARRATIVE: CASE EVENT DATE: 20180706
